FAERS Safety Report 9490795 (Version 10)
Quarter: 2015Q2

REPORT INFORMATION
  Report Type: Spontaneous
  Country: US (occurrence: None)
  Receive Date: 20130826
  Receipt Date: 20150603
  Transmission Date: 20150821
  Serious: Yes (Life-Threatening, Hospitalization, Other)
  Sender: FDA-Public Use
  Company Number: ADR-2013-01460

PATIENT
  Age: 54 Year
  Sex: Female

DRUGS (16)
  1. AMBIEN [Concomitant]
     Active Substance: ZOLPIDEM TARTRATE
  2. AMITRIPTYLINE [Concomitant]
     Active Substance: AMITRIPTYLINE
  3. BACLOFEN. [Concomitant]
     Active Substance: BACLOFEN
  4. TRICOR [Concomitant]
     Active Substance: FENOFIBRATE
  5. BENAZEPRIL [Concomitant]
     Active Substance: BENAZEPRIL\BENAZEPRIL HYDROCHLORIDE
  6. METFORMINACARBOSE [Concomitant]
  7. SENOKOT [Concomitant]
     Active Substance: SENNOSIDES
  8. DOCUSATE [Concomitant]
     Active Substance: DOCUSATE
  9. SYNTHROID [Concomitant]
     Active Substance: LEVOTHYROXINE SODIUM
  10. ZOLPIDEM [Concomitant]
     Active Substance: ZOLPIDEM\ZOLPIDEM TARTRATE
  11. LANSOPRAZOLE. [Concomitant]
     Active Substance: LANSOPRAZOLE
  12. COMPOUNDED BACLOFEN [Suspect]
     Active Substance: BACLOFEN
     Indication: MUSCLE SPASTICITY
  13. MORPHINE INTRATHECAL [Suspect]
     Active Substance: MORPHINE
     Dosage: 0.1332 MG/HR
  14. GABAPENTIN. [Concomitant]
     Active Substance: GABAPENTIN
  15. BUPROPION [Concomitant]
     Active Substance: BUPROPION
  16. VERAMYST [Concomitant]
     Active Substance: FLUTICASONE FUROATE

REACTIONS (33)
  - Depressed level of consciousness [None]
  - Resuscitation [None]
  - Hypertension [None]
  - Mental status changes [None]
  - Dyspnoea [None]
  - Treatment noncompliance [None]
  - Heart rate increased [None]
  - Loss of consciousness [None]
  - Overdose [None]
  - Dizziness [None]
  - Incorrect dose administered by device [None]
  - Respiratory depression [None]
  - Eye movement disorder [None]
  - Nervous system disorder [None]
  - Insomnia [None]
  - Cognitive disorder [None]
  - Seizure [None]
  - Sedation [None]
  - Device infusion issue [None]
  - Fatigue [None]
  - Lethargy [None]
  - Metabolic disorder [None]
  - Somnolence [None]
  - Muscle spasticity [None]
  - Fall [None]
  - Encephalopathy [None]
  - Implant site reaction [None]
  - Burning sensation [None]
  - Dyskinesia [None]
  - Drug withdrawal syndrome [None]
  - Unresponsive to stimuli [None]
  - Syncope [None]
  - Memory impairment [None]

NARRATIVE: CASE EVENT DATE: 20121004
